FAERS Safety Report 7981845-8 (Version None)
Quarter: 2011Q4

REPORT INFORMATION
  Report Type: 
  Country: None (occurrence: None)
  Receive Date: 20111215
  Receipt Date: 20111212
  Transmission Date: 20120403
  Serious: Yes (Hospitalization, Other)
  Sender: FDA-Public Use
  Company Number: BE-PFIZER INC-2011293091

PATIENT
  Age: 41 Year
  Sex: Female
  Weight: 51 kg

DRUGS (5)
  1. SERTRALINE HYDROCHLORIDE [Suspect]
     Indication: DEPRESSED MOOD
     Dosage: 50 MG, 1X/DAY
     Route: 048
     Dates: start: 20110901
  2. PROTHIADEN [Concomitant]
     Route: 048
  3. XANAX [Concomitant]
     Dosage: 1 MG, 1X/DAY
  4. GABAPENTIN [Concomitant]
     Dosage: 300 MG, 1X/DAY
     Dates: start: 20110901
  5. LORAZEPAM [Concomitant]
     Dosage: 0.5 MG, 2X/DAY

REACTIONS (7)
  - GASTRITIS [None]
  - FACIAL NEURALGIA [None]
  - DRY MOUTH [None]
  - HYPERSENSITIVITY [None]
  - BURNING MOUTH SYNDROME [None]
  - WEIGHT DECREASED [None]
  - DECREASED APPETITE [None]
